FAERS Safety Report 11780130 (Version 1)
Quarter: 2015Q4

REPORT INFORMATION
  Report Type: Spontaneous
  Country: US (occurrence: US)
  Receive Date: 20151126
  Receipt Date: 20151126
  Transmission Date: 20160305
  Serious: No
  Sender: FDA-Public Use
  Company Number: US-JNJFOC-20151008014

PATIENT
  Age: 32 Year
  Sex: Female

DRUGS (6)
  1. ALOE VERA [Concomitant]
     Active Substance: ALOE VERA LEAF
     Indication: WEIGHT DECREASED
     Dosage: NICKLE SIZE 2X DAILY FOR 2 MONTHS
     Route: 065
  2. OTHER THERAPEUTIC PRODUCTS [Concomitant]
     Active Substance: UNSPECIFIED INGREDIENT
     Indication: GASTROINTESTINAL DISORDER
     Route: 065
  3. DIET FORMULATIONS FOR TREATMENT OF OBESITY [Concomitant]
     Indication: ROUTINE HEALTH MAINTENANCE
     Dosage: 2 TIMES AT NIGHT AT NIGHT FOR 4 MONTHS
     Route: 065
  4. ADVIL [Concomitant]
     Active Substance: IBUPROFEN
     Indication: HEADACHE
     Dosage: FOR 4-5 MONTHS
     Route: 065
  5. ROBITUSSIN COLD [Concomitant]
     Indication: CHEST PAIN
     Dosage: 2 TIMES A WEEK FOR YEARS
     Route: 065
  6. TYLENOL EXTRA STRENGTH [Suspect]
     Active Substance: ACETAMINOPHEN
     Indication: HEADACHE
     Dosage: 1X DAILY FOR 1 WEEK
     Route: 048

REACTIONS (2)
  - Drug ineffective [Unknown]
  - Underdose [Unknown]
